FAERS Safety Report 7338955-8 (Version None)
Quarter: 2011Q1

REPORT INFORMATION
  Report Type: 
  Country: None (occurrence: None)
  Receive Date: 20110308
  Receipt Date: 20110225
  Transmission Date: 20110831
  Serious: Yes (Hospitalization)
  Sender: FDA-Public Use
  Company Number: US-BAXTER-2011BH001717

PATIENT
  Age: 74 Year
  Sex: Male

DRUGS (3)
  1. DIANEAL [Suspect]
     Indication: PERITONEAL DIALYSIS
     Route: 033
     Dates: end: 20110101
  2. GLYCERINE IRRIGATION SOLUTION [Suspect]
     Indication: DRUG ADMINISTRATION ERROR
     Route: 033
     Dates: start: 20100101, end: 20100101
  3. DIANEAL [Suspect]
     Indication: PERITONEAL DIALYSIS
     Route: 033
     Dates: end: 20110101

REACTIONS (12)
  - VOMITING [None]
  - DYSPHAGIA [None]
  - VISION BLURRED [None]
  - EATING DISORDER [None]
  - DIZZINESS [None]
  - NAUSEA [None]
  - SPEECH DISORDER [None]
  - FOAMING AT MOUTH [None]
  - UNRESPONSIVE TO STIMULI [None]
  - FLUID OVERLOAD [None]
  - PNEUMONIA [None]
  - CARDIAC VALVE DISEASE [None]
